FAERS Safety Report 6235436-X (Version None)
Quarter: 2009Q2

REPORT INFORMATION
  Report Type: 
  Country: None (occurrence: None)
  Receive Date: 20090618
  Receipt Date: 20090224
  Transmission Date: 20091009
  Serious: No
  Sender: FDA-Public Use
  Company Number: US-ASTRAZENECA-2009UW05074

PATIENT
  Sex: Male

DRUGS (2)
  1. RHINOCORT [Suspect]
     Dosage: ONE SPRAY PER NOSTRIL DAILY
     Route: 045
  2. ADVIL COLD AND SINUS [Concomitant]

REACTIONS (2)
  - DRY MOUTH [None]
  - NASAL DISCOMFORT [None]
